FAERS Safety Report 4746934-X (Version None)
Quarter: 2005Q3

REPORT INFORMATION
  Report Type: 
  Country: None (occurrence: None)
  Receive Date: 20050817
  Receipt Date: 20050712
  Transmission Date: 20060218
  Serious: Yes (Hospitalization)
  Sender: FDA-Public Use
  Company Number: PHEH2005US07776

PATIENT
  Age: 78 Year
  Sex: Female

DRUGS (1)
  1. MIACALCIN [Suspect]
     Route: 065

REACTIONS (4)
  - ANAEMIA [None]
  - BLOOD SODIUM DECREASED [None]
  - DYSPHONIA [None]
  - LOSS OF CONSCIOUSNESS [None]
